FAERS Safety Report 22655207 (Version 3)
Quarter: 2023Q4

REPORT INFORMATION
  Report Type: Report from Study
  Country: DE (occurrence: DE)
  Receive Date: 20230629
  Receipt Date: 20231102
  Transmission Date: 20240110
  Serious: Yes (Hospitalization, Other)
  Sender: FDA-Public Use
  Company Number: DE-002147023-NVSC2022DE094127

PATIENT
  Age: 51 Year
  Sex: Female
  Weight: 74 kg

DRUGS (17)
  1. TAFINLAR [Suspect]
     Active Substance: DABRAFENIB MESYLATE
     Indication: Malignant melanoma
     Dosage: 150 MG
     Route: 048
     Dates: start: 20210803, end: 20210811
  2. TAFINLAR [Suspect]
     Active Substance: DABRAFENIB MESYLATE
     Dosage: 150 MG
     Route: 048
     Dates: end: 20210909
  3. TAFINLAR [Suspect]
     Active Substance: DABRAFENIB MESYLATE
     Dosage: 150 MG
     Route: 048
     Dates: end: 20210928
  4. TAFINLAR [Suspect]
     Active Substance: DABRAFENIB MESYLATE
     Dosage: 150 MG
     Route: 048
     Dates: end: 20211019
  5. TAFINLAR [Suspect]
     Active Substance: DABRAFENIB MESYLATE
     Dosage: 150 MG
     Route: 065
     Dates: end: 20220411
  6. TAFINLAR [Suspect]
     Active Substance: DABRAFENIB MESYLATE
     Dosage: 150 MG
     Route: 065
     Dates: end: 20220412
  7. TAFINLAR [Suspect]
     Active Substance: DABRAFENIB MESYLATE
     Dosage: 150 MG
     Route: 065
     Dates: end: 20220415
  8. TAFINLAR [Suspect]
     Active Substance: DABRAFENIB MESYLATE
     Dosage: 150 MG
     Route: 065
     Dates: end: 20220416
  9. MEKINIST [Suspect]
     Active Substance: TRAMETINIB DIMETHYL SULFOXIDE
     Indication: Malignant melanoma
     Dosage: 2 MG
     Route: 048
     Dates: start: 20210803, end: 20210811
  10. MEKINIST [Suspect]
     Active Substance: TRAMETINIB DIMETHYL SULFOXIDE
     Dosage: 2 MG
     Route: 048
     Dates: end: 20210909
  11. MEKINIST [Suspect]
     Active Substance: TRAMETINIB DIMETHYL SULFOXIDE
     Dosage: 2 MG
     Route: 048
     Dates: end: 20210928
  12. MEKINIST [Suspect]
     Active Substance: TRAMETINIB DIMETHYL SULFOXIDE
     Dosage: 2 MG
     Route: 048
     Dates: end: 20211019
  13. MEKINIST [Suspect]
     Active Substance: TRAMETINIB DIMETHYL SULFOXIDE
     Dosage: 2 MG
     Route: 065
     Dates: end: 20220411
  14. MEKINIST [Suspect]
     Active Substance: TRAMETINIB DIMETHYL SULFOXIDE
     Dosage: 2 MG
     Route: 065
     Dates: end: 20220412
  15. MEKINIST [Suspect]
     Active Substance: TRAMETINIB DIMETHYL SULFOXIDE
     Dosage: 2 MG
     Route: 065
     Dates: end: 20220415
  16. MEKINIST [Suspect]
     Active Substance: TRAMETINIB DIMETHYL SULFOXIDE
     Dosage: 2 MG
     Route: 065
     Dates: end: 20220416
  17. PANTOPRAZOLE [Concomitant]
     Active Substance: PANTOPRAZOLE
     Indication: Prophylaxis
     Dosage: UNK, QD
     Route: 048

REACTIONS (15)
  - Oropharyngeal pain [Recovered/Resolved]
  - Chills [Recovered/Resolved]
  - Panniculitis [Recovered/Resolved]
  - Dizziness [Recovered/Resolved]
  - Cough [Recovered/Resolved]
  - Dyspnoea [Recovered/Resolved]
  - Nausea [Recovered/Resolved]
  - Decreased appetite [Unknown]
  - Panniculitis [Recovered/Resolved]
  - Myalgia [Recovered/Resolved]
  - Arthralgia [Recovered/Resolved]
  - Rash maculo-papular [Recovered/Resolved]
  - Fatigue [Recovered/Resolved]
  - Macule [Recovering/Resolving]
  - Nausea [Recovered/Resolved]

NARRATIVE: CASE EVENT DATE: 20210812
